FAERS Safety Report 23780711 (Version 1)
Quarter: 2024Q2

REPORT INFORMATION
  Report Type: Spontaneous
  Country: US (occurrence: US)
  Receive Date: 20240425
  Receipt Date: 20240425
  Transmission Date: 20240716
  Serious: Yes (Hospitalization, Other)
  Sender: FDA-Public Use
  Company Number: US-AMNEAL PHARMACEUTICALS-2024-AMRX-01359

PATIENT
  Age: 24 Year
  Sex: Female

DRUGS (2)
  1. ESTRADIOL [Suspect]
     Active Substance: ESTRADIOL
     Indication: Menstruation irregular
     Dosage: 20 MICROGRAM
     Route: 065
  2. NORETHINDRONE ACETATE [Concomitant]
     Active Substance: NORETHINDRONE ACETATE
     Indication: Menstruation irregular
     Dosage: 1 MILLIGRAM
     Route: 065

REACTIONS (2)
  - Coronary artery dissection [Recovering/Resolving]
  - Acute myocardial infarction [Recovering/Resolving]
